FAERS Safety Report 8623069 (Version 3)
Quarter: 2012Q4

REPORT INFORMATION
  Report Type: 
  Country: CO (occurrence: CO)
  Receive Date: 20120620
  Receipt Date: 20120917
  Transmission Date: 20130627
  Serious: Yes (Other)
  Sender: FDA-Public Use
  Company Number: CO-AMGEN-COLSP2012037239

PATIENT
  Age: 53 Year
  Sex: Female

DRUGS (6)
  1. ENBREL [Suspect]
     Indication: RHEUMATOID ARTHRITIS
     Dosage: 50 mg, weekly
     Route: 058
     Dates: start: 20120217
  2. ISONIAZID [Concomitant]
     Indication: TUBERCULOSIS
     Dosage: UNK
     Route: 065
     Dates: start: 20120111
  3. LEFLUNOMIDE [Concomitant]
     Indication: TUBERCULOSIS
     Dosage: UNK
     Dates: start: 20120111
  4. LOVASTATIN [Concomitant]
     Indication: BLOOD CHOLESTEROL
     Dosage: UNK
     Dates: start: 201201
  5. CALCIUM [Concomitant]
     Dosage: 300 mg, UNK
     Dates: start: 2009
  6. PREDNISOLONE [Concomitant]
     Dosage: UNK
     Dates: start: 201201

REACTIONS (6)
  - Alopecia [Not Recovered/Not Resolved]
  - Emotional distress [Not Recovered/Not Resolved]
  - Social avoidant behaviour [Not Recovered/Not Resolved]
  - Aptyalism [Not Recovered/Not Resolved]
  - Onychoclasis [Not Recovered/Not Resolved]
  - Rhinitis [Not Recovered/Not Resolved]
